FAERS Safety Report 16314562 (Version 1)
Quarter: 2019Q2

REPORT INFORMATION
  Report Type: Spontaneous
  Country: US (occurrence: US)
  Receive Date: 20190410
  Receipt Date: 20190410
  Transmission Date: 20190711
  Serious: No
  Sender: FDA-Public Use
  Company Number: None

PATIENT
  Age: 60 Year
  Sex: Female

DRUGS (1)
  1. CAPECITABINE 500MG [Suspect]
     Active Substance: CAPECITABINE
     Indication: RECTAL CANCER
     Route: 048
     Dates: start: 20190313

REACTIONS (5)
  - Decreased appetite [None]
  - Chromaturia [None]
  - Constipation [None]
  - Peripheral swelling [None]
  - Dizziness [None]

NARRATIVE: CASE EVENT DATE: 20190410
